FAERS Safety Report 24875323 (Version 1)
Quarter: 2025Q1

REPORT INFORMATION
  Report Type: Spontaneous
  Country: US (occurrence: None)
  Receive Date: 20250122
  Receipt Date: 20250122
  Transmission Date: 20250409
  Serious: Yes (Other)
  Sender: FDA-CTU
  Company Number: None

PATIENT
  Age: 58 Year
  Sex: Male

DRUGS (1)
  1. ERIVEDGE [Suspect]
     Active Substance: VISMODEGIB
     Indication: Basal cell carcinoma
     Dosage: DAILY ORAL ?
     Route: 048
     Dates: start: 20240613, end: 20241224

REACTIONS (2)
  - Muscle spasms [None]
  - Drug intolerance [None]

NARRATIVE: CASE EVENT DATE: 20250122
